FAERS Safety Report 6596513-7 (Version None)
Quarter: 2010Q1

REPORT INFORMATION
  Report Type: 
  Country: None (occurrence: None)
  Receive Date: 20100223
  Receipt Date: 20100217
  Transmission Date: 20100710
  Serious: Yes (Death, Life-Threatening, Hospitalization)
  Sender: FDA-Public Use
  Company Number: JP-ROCHE-678400

PATIENT
  Sex: Female
  Weight: 47 kg

DRUGS (15)
  1. ACTEMRA [Suspect]
     Indication: RHEUMATOID ARTHRITIS
     Route: 041
     Dates: start: 20091118, end: 20091118
  2. ACTEMRA [Suspect]
     Route: 041
     Dates: start: 20091216, end: 20091216
  3. METHOTREXATE [Suspect]
     Indication: RHEUMATOID ARTHRITIS
     Dosage: DOSE FORM: PERORAL AGENT
     Route: 048
     Dates: start: 20071003, end: 20080122
  4. METHOTREXATE [Suspect]
     Route: 048
     Dates: start: 20080123, end: 20081028
  5. METHOTREXATE [Suspect]
     Route: 048
     Dates: start: 20081029, end: 20081117
  6. METHOTREXATE [Suspect]
     Route: 048
     Dates: start: 20091118, end: 20100104
  7. FOLIAMIN [Concomitant]
     Route: 048
     Dates: start: 20071003, end: 20100104
  8. HYPEN [Concomitant]
     Route: 048
     Dates: start: 20071003, end: 20100104
  9. MUCOSTA [Concomitant]
     Route: 048
     Dates: start: 20071003, end: 20100104
  10. INTEBAN [Concomitant]
     Route: 054
     Dates: start: 20071003, end: 20100104
  11. DIOVAN [Concomitant]
     Route: 048
     Dates: start: 20071017, end: 20100104
  12. DOXAZOSIN MESILATE [Concomitant]
     Route: 048
     Dates: start: 20080312, end: 20100104
  13. METHYCOOL [Concomitant]
     Route: 048
     Dates: start: 20080109, end: 20100104
  14. NORVASC [Concomitant]
     Route: 048
     Dates: start: 20081129, end: 20100104
  15. FELBINAC [Concomitant]
     Dosage: FORM: TAPE
     Route: 061
     Dates: start: 20081118, end: 20100104

REACTIONS (5)
  - ACUTE RESPIRATORY DISTRESS SYNDROME [None]
  - AGRANULOCYTOSIS [None]
  - DISSEMINATED INTRAVASCULAR COAGULATION [None]
  - PNEUMONIA [None]
  - SEPTIC SHOCK [None]
